FAERS Safety Report 7299884-1 (Version None)
Quarter: 2011Q1

REPORT INFORMATION
  Report Type: 
  Country: None (occurrence: None)
  Receive Date: 20110217
  Receipt Date: 20110114
  Transmission Date: 20110831
  Serious: No
  Sender: FDA-Public Use
  Company Number: US-BAYER-2011-005506

PATIENT
  Sex: Female
  Weight: 73 kg

DRUGS (6)
  1. ASCORBIC ACID [Concomitant]
  2. POTASSIUM [Concomitant]
  3. ECHINACEA [Concomitant]
  4. VITAMIN B-12 [Concomitant]
  5. ALEVE (CAPLET) [Suspect]
     Indication: ARTHRITIS
     Dosage: UNK
     Route: 048
     Dates: start: 20110112, end: 20110113
  6. VITAMIN D [Concomitant]

REACTIONS (2)
  - FEELING ABNORMAL [None]
  - FATIGUE [None]
